FAERS Safety Report 4821862-X (Version None)
Quarter: 2005Q4

REPORT INFORMATION
  Report Type: 
  Country: None (occurrence: None)
  Receive Date: 20051102
  Receipt Date: 20051012
  Transmission Date: 20060501
  Serious: Yes (Other)
  Sender: FDA-Public Use
  Company Number: EWC051046569

PATIENT
  Age: 50 Year
  Sex: Male

DRUGS (1)
  1. CIALIS [Suspect]
     Indication: ERECTILE DYSFUNCTION
     Dosage: 20 MG

REACTIONS (4)
  - CARDIAC DISORDER [None]
  - CONJUNCTIVAL HAEMORRHAGE [None]
  - CONJUNCTIVAL HYPERAEMIA [None]
  - HYPERTENSION [None]
